FAERS Safety Report 16539648 (Version 2)
Quarter: 2019Q3

REPORT INFORMATION
  Report Type: Report from Study
  Country: GB (occurrence: GB)
  Receive Date: 20190708
  Receipt Date: 20190715
  Transmission Date: 20191004
  Serious: Yes (Hospitalization)
  Sender: FDA-Public Use
  Company Number: GB-ROCHE-2347193

PATIENT
  Age: 84 Year
  Sex: Female
  Weight: 57.9 kg

DRUGS (5)
  1. RITUXIMAB. [Suspect]
     Active Substance: RITUXIMAB
     Indication: DIFFUSE LARGE B-CELL LYMPHOMA
     Dosage: MOST RECENT OF RITUXIMAB PRIOR TO EVENT ONSET ON 26/JUN/2019.
     Route: 041
     Dates: start: 20190515
  2. G-CSF [Suspect]
     Active Substance: GRANULOCYTE COLONY-STIMULATING FACTOR NOS
     Indication: DIFFUSE LARGE B-CELL LYMPHOMA
     Dosage: 30 MILLION UNITS?DATE OF MOST RECENT DOSE OF G-CSF ADMINISTERED PRIOR TO EVENT ONSET: 22/JUN/2019
     Route: 065
     Dates: start: 20190519
  3. RITUXIMAB. [Suspect]
     Active Substance: RITUXIMAB
     Indication: DIFFUSE LARGE B-CELL LYMPHOMA
     Dosage: MOST RECENT OF RITUXIMAB PRIOR TO EVENT ONSET ON 26/JUN/2019 AT A DOSE OF 1400 MG
     Route: 058
     Dates: start: 20190524
  4. GEMCITABINE. [Suspect]
     Active Substance: GEMCITABINE
     Indication: DIFFUSE LARGE B-CELL LYMPHOMA
     Dosage: DATE OF MOST RECENT OF GEMCITABINE PRIOR TO EVENT ONSET: 26/JUN/2019 AT A DOSE OF 1710 MG
     Route: 041
     Dates: start: 20190515
  5. OXALIPLATIN. [Suspect]
     Active Substance: OXALIPLATIN
     Indication: DIFFUSE LARGE B-CELL LYMPHOMA
     Dosage: DATE OF MOST RECENT OF OXALIPLATIN PRIOR TO EVENT ONSET: 26/JUN/2019 AT A DOSE OF 165 MG
     Route: 041
     Dates: start: 20190515

REACTIONS (2)
  - Back pain [Recovered/Resolved with Sequelae]
  - Muscular weakness [Not Recovered/Not Resolved]

NARRATIVE: CASE EVENT DATE: 20190626
